FAERS Safety Report 8033734-0 (Version None)
Quarter: 2012Q1

REPORT INFORMATION
  Report Type: 
  Country: None (occurrence: None)
  Receive Date: 20120110
  Receipt Date: 20120103
  Transmission Date: 20120608
  Serious: Yes (Hospitalization)
  Sender: FDA-Public Use
  Company Number: DE-GLAXOSMITHKLINE-B0764077B

PATIENT
  Sex: Female
  Weight: 94 kg

DRUGS (7)
  1. PREDNISOLONE SODIUM SUCCINATE INJ [Concomitant]
     Indication: VESTIBULAR NEURONITIS
     Dosage: 100MG PER DAY
     Route: 042
     Dates: start: 20111216, end: 20111221
  2. TRENTAL [Concomitant]
     Indication: VESTIBULAR NEURONITIS
     Dosage: 300MG PER DAY
     Route: 042
     Dates: start: 20111216, end: 20111221
  3. BLINDED STUDY MEDICATION [Suspect]
     Indication: OVARIAN CANCER
     Route: 048
     Dates: start: 20111105
  4. RANITIC [Concomitant]
     Indication: VESTIBULAR NEURONITIS
     Dosage: 300MG PER DAY
     Route: 048
     Dates: start: 20111216, end: 20111221
  5. TOPOTECAN [Suspect]
     Indication: OVARIAN CANCER
     Dosage: 2MG PER DAY
     Route: 042
     Dates: start: 20111031
  6. HAES [Concomitant]
     Indication: VESTIBULAR NEURONITIS
     Dosage: 500G PER DAY
     Route: 042
     Dates: start: 20111216, end: 20111221
  7. UNIZINK [Concomitant]
     Indication: VESTIBULAR NEURONITIS
     Dosage: 50MG PER DAY
     Route: 048
     Dates: start: 20111216, end: 20111221

REACTIONS (3)
  - THROMBOCYTOPENIA [None]
  - ANAEMIA [None]
  - DIZZINESS [None]
